FAERS Safety Report 4353505-6 (Version None)
Quarter: 2004Q2

REPORT INFORMATION
  Report Type: 
  Country: None (occurrence: None)
  Receive Date: 20040505
  Receipt Date: 20040429
  Transmission Date: 20050107
  Serious: Yes (Life-Threatening, Other)
  Sender: FDA-Public Use
  Company Number: US-MERCK-0404USA02557

PATIENT
  Age: 63 Year
  Sex: Female

DRUGS (2)
  1. ZETIA [Suspect]
     Indication: BLOOD CHOLESTEROL INCREASED
     Route: 048
     Dates: start: 20030101
  2. ATROVENT [Concomitant]
     Route: 065

REACTIONS (3)
  - DYSPNOEA [None]
  - GALLBLADDER DISORDER [None]
  - OBSTRUCTIVE AIRWAYS DISORDER [None]
